FAERS Safety Report 9269901 (Version 2)
Quarter: 2013Q4

REPORT INFORMATION
  Report Type: Spontaneous
  Country: US (occurrence: US)
  Receive Date: 20130503
  Receipt Date: 20131008
  Transmission Date: 20140711
  Serious: Yes (Death, Hospitalization)
  Sender: FDA-Public Use
  Company Number: US-B.I. PHARMACEUTICALS,INC./RIDGEFIELD-2013-BI-12334BP

PATIENT
  Age: 82 Year
  Sex: Female

DRUGS (10)
  1. PRADAXA [Suspect]
     Dates: start: 20110324, end: 20110425
  2. ALENDRONATE [Concomitant]
     Dosage: 10 MG
  3. PLAVIX [Concomitant]
     Dosage: 32.1429 MG
  4. SYNTHROID [Concomitant]
     Dosage: 0.1 MG
  5. BENAZEPRIL [Concomitant]
     Dosage: 10 MG
  6. METOPROLOL [Concomitant]
     Dosage: 50 MG
  7. LASIX [Concomitant]
     Dosage: 20 MG
  8. PREDNISONE [Concomitant]
     Dosage: 10 MG
  9. ADVAIR DISKUS [Concomitant]
  10. SIMVASTATIN [Concomitant]
     Dosage: 20 MG

REACTIONS (2)
  - Acute myocardial infarction [Fatal]
  - Cardiogenic shock [Fatal]
